FAERS Safety Report 21541652 (Version 6)
Quarter: 2025Q1

REPORT INFORMATION
  Report Type: Spontaneous
  Country: US (occurrence: US)
  Receive Date: 20221102
  Receipt Date: 20250228
  Transmission Date: 20250409
  Serious: Yes (Other)
  Sender: SANOFI AVENTIS
  Company Number: US-SA-SAC20221102000561

PATIENT
  Age: 78 Year
  Sex: Male
  Weight: 82.5 kg

DRUGS (20)
  1. DUPIXENT [Suspect]
     Active Substance: DUPILUMAB
     Indication: Dermatitis atopic
     Dosage: 300 MG, QOW
     Route: 058
     Dates: start: 20191001
  2. DUPIXENT [Suspect]
     Active Substance: DUPILUMAB
     Indication: Dermatitis atopic
  3. RINVOQ [Suspect]
     Active Substance: UPADACITINIB
  4. OXYBUTYNIN [Concomitant]
     Active Substance: OXYBUTYNIN
  5. PROPRANOLOL [Concomitant]
     Active Substance: PROPRANOLOL HYDROCHLORIDE
  6. PRAVASTATIN [Concomitant]
     Active Substance: PRAVASTATIN
  7. CLONAZEPAM [Concomitant]
     Active Substance: CLONAZEPAM
  8. TOBRAMYCIN [Concomitant]
     Active Substance: TOBRAMYCIN
  9. PROLENSA [Concomitant]
     Active Substance: BROMFENAC SODIUM
  10. OMEPRAZOLE [Concomitant]
     Active Substance: OMEPRAZOLE
  11. XARELTO [Concomitant]
     Active Substance: RIVAROXABAN
  12. SULFAMETHOXAZOLE [Concomitant]
     Active Substance: SULFAMETHOXAZOLE
  13. CYCLOBENZAPRINE HYDROCHLORIDE [Concomitant]
     Active Substance: CYCLOBENZAPRINE HYDROCHLORIDE
  14. ATORVASTATIN [Concomitant]
     Active Substance: ATORVASTATIN
  15. AZITHROMYCIN [Concomitant]
     Active Substance: AZITHROMYCIN
  16. LOSARTAN [Concomitant]
     Active Substance: LOSARTAN
  17. ZOLPIDEM TARTRATE [Concomitant]
     Active Substance: ZOLPIDEM TARTRATE
  18. PRAMIPEXOLE DIHYDROCHLORIDE [Concomitant]
     Active Substance: PRAMIPEXOLE DIHYDROCHLORIDE
  19. TAMSULOSIN HYDROCHLORIDE [Concomitant]
     Active Substance: TAMSULOSIN HYDROCHLORIDE
  20. PROPRANOLOL HYDROCHLORIDE [Concomitant]
     Active Substance: PROPRANOLOL HYDROCHLORIDE

REACTIONS (12)
  - Thrombosis [Not Recovered/Not Resolved]
  - Neoplasm malignant [Unknown]
  - Cataract [Not Recovered/Not Resolved]
  - Restless legs syndrome [Unknown]
  - Sleep disorder [Unknown]
  - Extrasystoles [Unknown]
  - Abnormal dreams [Recovering/Resolving]
  - Drug interaction [Recovering/Resolving]
  - Peripheral swelling [Not Recovered/Not Resolved]
  - Blister [Not Recovered/Not Resolved]
  - Dry skin [Not Recovered/Not Resolved]
  - Pruritus [Not Recovered/Not Resolved]

NARRATIVE: CASE EVENT DATE: 20220101
